FAERS Safety Report 7568525-8 (Version None)
Quarter: 2011Q2

REPORT INFORMATION
  Report Type: 
  Country: None (occurrence: None)
  Receive Date: 20110623
  Receipt Date: 20110616
  Transmission Date: 20111010
  Serious: Yes (Hospitalization, Other)
  Sender: FDA-Public Use
  Company Number: HU-PFIZER INC-2011133519

PATIENT
  Age: 74 Year
  Sex: Female
  Weight: 80 kg

DRUGS (13)
  1. ATORVASTATIN CALCIUM [Suspect]
     Dosage: UNK, 1X/DAY
     Dates: start: 20110501, end: 20110501
  2. MONO MACK [Concomitant]
     Dosage: UNK
  3. ADEXOR [Concomitant]
     Dosage: UNK
  4. HUMULIN R [Concomitant]
     Dosage: UNK
  5. MICARDIS [Concomitant]
     Dosage: UNK
  6. MEMORIL [Concomitant]
     Dosage: UNK
  7. FUROSEMIDE [Concomitant]
     Dosage: UNK
  8. KALDYUM [Concomitant]
     Dosage: UNK
  9. HUMULIN R [Concomitant]
     Dosage: UNK
  10. LACIPIL [Concomitant]
     Dosage: UNK
  11. NEBIVOLOL HCL [Concomitant]
     Dosage: UNK
  12. MILURIT [Concomitant]
     Dosage: UNK
  13. RISEDRONIC ACID [Concomitant]
     Dosage: UNK

REACTIONS (4)
  - BILIARY TRACT DISORDER [None]
  - ABDOMINAL PAIN UPPER [None]
  - DECREASED APPETITE [None]
  - NAUSEA [None]
